FAERS Safety Report 15898820 (Version 3)
Quarter: 2022Q2

REPORT INFORMATION
  Report Type: Spontaneous
  Country: US (occurrence: US)
  Receive Date: 20190201
  Receipt Date: 20220424
  Transmission Date: 20220721
  Serious: Yes (Disabling)
  Sender: FDA-Public Use
  Company Number: US-TEVA-2019-US-1005190

PATIENT
  Age: 58 Year
  Sex: Female
  Weight: 79.83 kg

DRUGS (6)
  1. DOCETAXEL [Suspect]
     Active Substance: DOCETAXEL
     Indication: Breast cancer female
     Dosage: 136 MG, 104 MG, NUMBER OF CYCLES-02, EVERY 3 WEEKS IN COMBINATION OR SEQUENCE WITH TRASTUZUMAB
     Route: 042
     Dates: start: 20140210, end: 20140317
  2. DOCETAXEL [Suspect]
     Active Substance: DOCETAXEL
     Indication: Breast cancer female
     Dosage: 136 MG, 104 MG, NUMBER OF CYCLES-02, EVERY 3 WEEKS IN COMBINATION OR SEQUENCE WITH TRASTUZUMAB
     Route: 042
     Dates: start: 20140210, end: 20140317
  3. RENO CAPS [Concomitant]
     Active Substance: ASCORBIC ACID\BIOTIN\CYANOCOBALAMIN\FOLIC ACID\NIACIN\PANTOTHENIC ACID\PYRIDOXINE\RIBOFLAVIN\THIAMIN
     Route: 065
     Dates: start: 20010101
  4. CALCIUM [Concomitant]
     Active Substance: CALCIUM
     Route: 065
     Dates: start: 20110101
  5. AMLODIPINE [Concomitant]
     Active Substance: AMLODIPINE BESYLATE
     Route: 065
     Dates: start: 20010101
  6. TRASTUZUMAB [Concomitant]
     Active Substance: TRASTUZUMAB
     Indication: Breast cancer female
     Dosage: 136 MG, 104 MG, NUMBER OF CYCLES-02, EVERY 3 WEEKS IN COMBINATION OR SEQUENCE WITH TRASTUZUMAB
     Route: 042
     Dates: start: 20140210, end: 20140317

REACTIONS (3)
  - Alopecia areata [Not Recovered/Not Resolved]
  - Hair texture abnormal [Not Recovered/Not Resolved]
  - Hair colour changes [Not Recovered/Not Resolved]

NARRATIVE: CASE EVENT DATE: 20140301
